FAERS Safety Report 10272654 (Version 1)
Quarter: 2014Q3

REPORT INFORMATION
  Report Type: Report from Study
  Country: US (occurrence: US)
  Receive Date: 20140702
  Receipt Date: 20140702
  Transmission Date: 20150326
  Serious: Yes (Other)
  Sender: FDA-Public Use
  Company Number: PHEH2014US012850

PATIENT
  Sex: Female
  Weight: 89.34 kg

DRUGS (4)
  1. GILENYA [Suspect]
     Active Substance: FINGOLIMOD HYDROCHLORIDE
     Indication: MULTIPLE SCLEROSIS
     Dosage: 0.5 MG, QD
     Route: 048
     Dates: start: 2012
  2. BACLOFEN. [Suspect]
     Active Substance: BACLOFEN
     Indication: MUSCLE SPASTICITY
  3. NEURONTIN [Suspect]
     Active Substance: GABAPENTIN
     Indication: NEURALGIA
  4. AUBAGIO [Suspect]
     Active Substance: TERIFLUNOMIDE

REACTIONS (50)
  - Cervical radiculopathy [Unknown]
  - Depression [Not Recovered/Not Resolved]
  - Loss of proprioception [Not Recovered/Not Resolved]
  - Malaise [Unknown]
  - Decreased appetite [Unknown]
  - Hypertension [Not Recovered/Not Resolved]
  - Cough [Unknown]
  - Ataxia [Not Recovered/Not Resolved]
  - Neuralgia [Unknown]
  - Constipation [Not Recovered/Not Resolved]
  - Dysarthria [Not Recovered/Not Resolved]
  - Micturition urgency [Unknown]
  - Myalgia [Unknown]
  - Pain in extremity [Not Recovered/Not Resolved]
  - Joint stiffness [Not Recovered/Not Resolved]
  - General physical health deterioration [Unknown]
  - Paraesthesia [Not Recovered/Not Resolved]
  - Back pain [Not Recovered/Not Resolved]
  - Dizziness [Not Recovered/Not Resolved]
  - Vision blurred [Unknown]
  - Mobility decreased [Not Recovered/Not Resolved]
  - Hypoaesthesia [Not Recovered/Not Resolved]
  - Syncope [Unknown]
  - Stress [Unknown]
  - Emotional distress [Unknown]
  - Disturbance in attention [Not Recovered/Not Resolved]
  - Oropharyngeal pain [Unknown]
  - Cognitive disorder [Not Recovered/Not Resolved]
  - Weight decreased [Unknown]
  - Blindness [Not Recovered/Not Resolved]
  - Loss of consciousness [Unknown]
  - Visual impairment [Not Recovered/Not Resolved]
  - Affect lability [Not Recovered/Not Resolved]
  - Oral pain [Unknown]
  - Muscular weakness [Not Recovered/Not Resolved]
  - Vertigo [Not Recovered/Not Resolved]
  - Neck pain [Not Recovered/Not Resolved]
  - Arthralgia [Not Recovered/Not Resolved]
  - Memory impairment [Not Recovered/Not Resolved]
  - Amnesia [Not Recovered/Not Resolved]
  - Muscle spasticity [Not Recovered/Not Resolved]
  - Hyperaesthesia [Not Recovered/Not Resolved]
  - Fatigue [Not Recovered/Not Resolved]
  - Monoparesis [Not Recovered/Not Resolved]
  - Dysuria [Not Recovered/Not Resolved]
  - Sexual dysfunction [Not Recovered/Not Resolved]
  - Urinary incontinence [Unknown]
  - Speech disorder [Not Recovered/Not Resolved]
  - Headache [Unknown]
  - Asthenia [Not Recovered/Not Resolved]
